FAERS Safety Report 5752069-X (Version None)
Quarter: 2008Q2

REPORT INFORMATION
  Report Type: 
  Country: None (occurrence: None)
  Receive Date: 20080529
  Receipt Date: 20080523
  Transmission Date: 20081010
  Serious: Yes (Death, Hospitalization)
  Sender: FDA-Public Use
  Company Number: JP-BRISTOL-MYERS SQUIBB COMPANY-14208649

PATIENT
  Age: 60 Year
  Sex: Male

DRUGS (6)
  1. STOCRIN CAPS [Suspect]
     Indication: HIV INFECTION
     Route: 048
     Dates: start: 20010207, end: 20071005
  2. KALETRA [Suspect]
     Indication: HIV INFECTION
     Dosage: DOSAGE FORM=CAPSULE. ALSO TAKEN FROM 23JUL2002TO 07NOV2006.
     Route: 048
     Dates: start: 20061108, end: 20071005
  3. NORVIR [Suspect]
     Indication: HIV INFECTION
     Dosage: NORVIR CAP.
     Route: 048
     Dates: start: 20071205, end: 20080226
  4. PREZISTA [Suspect]
     Indication: HIV INFECTION
     Route: 048
     Dates: start: 20071205, end: 20080226
  5. DIFLUCAN [Suspect]
     Indication: INFECTION PROPHYLAXIS
     Dosage: INITIAL START DATE-UNK STOP DATE: 04-OCT-2007.
     Route: 065
     Dates: start: 20071112, end: 20080226
  6. BAKTAR [Suspect]
     Indication: ANTIFUNGAL PROPHYLAXIS
     Route: 065
     Dates: end: 20080226

REACTIONS (5)
  - DEHYDRATION [None]
  - HYPOKALAEMIA [None]
  - INTERSTITIAL LUNG DISEASE [None]
  - MALNUTRITION [None]
  - RESPIRATORY ARREST [None]
